FAERS Safety Report 20662630 (Version 1)
Quarter: 2022Q2

REPORT INFORMATION
  Report Type: Other
  Country: US (occurrence: None)
  Receive Date: 20220401
  Receipt Date: 20220401
  Transmission Date: 20220720
  Serious: Yes (Hospitalization)
  Sender: FDA-Public Use
  Company Number: US-ROCHE-3057056

PATIENT
  Age: 46 Year
  Sex: Female
  Weight: 129.39 kg

DRUGS (8)
  1. OCREVUS [Suspect]
     Active Substance: OCRELIZUMAB
     Indication: Relapsing-remitting multiple sclerosis
     Dosage: DATE OF TREATMENT: 11/APR/2021, 19/APR/2021
     Route: 042
  2. LEVOTHYROXINE [Concomitant]
     Active Substance: LEVOTHYROXINE
     Dosage: TAKING FOR AT LEAST 5 YEARS ;ONGOING: YES
  3. LOVENOX [Concomitant]
     Active Substance: ENOXAPARIN SODIUM
  4. LISINOPRIL [Concomitant]
     Active Substance: LISINOPRIL
  5. COPAXONE [Concomitant]
     Active Substance: GLATIRAMER ACETATE
  6. XANAX [Concomitant]
     Active Substance: ALPRAZOLAM
  7. CLINDAMYCIN [Concomitant]
     Active Substance: CLINDAMYCIN
  8. SYNTHROID [Concomitant]
     Active Substance: LEVOTHYROXINE SODIUM

REACTIONS (1)
  - COVID-19 pneumonia [Recovered/Resolved]

NARRATIVE: CASE EVENT DATE: 20220201
